FAERS Safety Report 12663420 (Version 4)
Quarter: 2023Q2

REPORT INFORMATION
  Report Type: Spontaneous
  Country: JP (occurrence: JP)
  Receive Date: 20160818
  Receipt Date: 20230615
  Transmission Date: 20230721
  Serious: Yes (Other)
  Sender: FDA-Public Use
  Company Number: JP-BRISTOL-MYERS SQUIBB COMPANY-BMS-2015-007765

PATIENT
  Age: 82 Year
  Sex: Female

DRUGS (2)
  1. DACLATASVIR DIHYDROCHLORIDE [Suspect]
     Active Substance: DACLATASVIR DIHYDROCHLORIDE
     Indication: Hepatic cirrhosis
     Dosage: 60 MG, QD
     Route: 048
     Dates: start: 20141203, end: 20150117
  2. ASUNAPREVIR [Suspect]
     Active Substance: ASUNAPREVIR
     Indication: Hepatic cirrhosis
     Dosage: 100 MG, BID
     Route: 048
     Dates: start: 20141203, end: 20150117

REACTIONS (4)
  - Decreased appetite [Recovered/Resolved]
  - Herpes zoster [Recovered/Resolved]
  - Weight decreased [Recovered/Resolved]
  - Fatigue [Recovered/Resolved]

NARRATIVE: CASE EVENT DATE: 20150113
